FAERS Safety Report 6137606-8 (Version None)
Quarter: 2009Q1

REPORT INFORMATION
  Report Type: 
  Country: None (occurrence: None)
  Receive Date: 20090327
  Receipt Date: 20090327
  Transmission Date: 20090719
  Serious: No
  Sender: FDA-Public Use
  Company Number: None

PATIENT
  Sex: Female

DRUGS (1)
  1. SEPTOCAINE WITH EPINEPHRINE 1:100,000 (ARTICAINE 4% WITH EPI 1:10 5) B [Suspect]
     Dosage: 1.7 ML X 2=3.4ML ONCE INFILTRATION ON BUCCAL AND LINGUAL
     Route: 002
     Dates: start: 20090318

REACTIONS (3)
  - ANAESTHETIC COMPLICATION [None]
  - DELAYED RECOVERY FROM ANAESTHESIA [None]
  - HYPOAESTHESIA [None]
